FAERS Safety Report 16994912 (Version 2)
Quarter: 2019Q4

REPORT INFORMATION
  Report Type: Not Available
  Country: US (occurrence: US)
  Receive Date: 20191105
  Receipt Date: 20191126
  Transmission Date: 20200122
  Serious: No
  Sender: FDA-Public Use
  Company Number: US-NEUROCRINE BIOSCIENCES INC.-2019NBI03166

PATIENT
  Age: 56 Year
  Sex: Male

DRUGS (5)
  1. LITHIUM. [Concomitant]
     Active Substance: LITHIUM
     Route: 048
     Dates: start: 20170619
  2. RISPERDAL [Concomitant]
     Active Substance: RISPERIDONE
     Route: 048
     Dates: start: 20141009
  3. INGREZZA [Suspect]
     Active Substance: VALBENAZINE
     Indication: TARDIVE DYSKINESIA
     Route: 048
     Dates: start: 20190809, end: 20190904
  4. HALDOL [Concomitant]
     Active Substance: HALOPERIDOL
     Route: 048
     Dates: start: 20150121
  5. COGENTIN [Concomitant]
     Active Substance: BENZTROPINE MESYLATE
     Route: 048
     Dates: start: 20140903

REACTIONS (4)
  - Sedation [Recovered/Resolved]
  - Dizziness [Recovered/Resolved]
  - Gait disturbance [Recovered/Resolved]
  - Salivary hypersecretion [Recovered/Resolved]

NARRATIVE: CASE EVENT DATE: 20190828
